FAERS Safety Report 10884647 (Version 2)
Quarter: 2015Q2

REPORT INFORMATION
  Report Type: Spontaneous
  Country: US (occurrence: US)
  Receive Date: 20150304
  Receipt Date: 20150401
  Transmission Date: 20150821
  Serious: Yes (Hospitalization)
  Sender: FDA-Public Use
  Company Number: US-BEH-2015049329

PATIENT
  Age: 61 Year
  Sex: Male

DRUGS (11)
  1. MONONINE [Suspect]
     Active Substance: COAGULATION FACTOR IX HUMAN
     Dates: start: 20150220
  2. MULTIVITAMINS AND MINERALS [Concomitant]
     Dosage: 1 TAB
  3. METFORMIN [Concomitant]
     Active Substance: METFORMIN HYDROCHLORIDE
     Route: 048
  4. BUPROPION [Concomitant]
     Active Substance: BUPROPION
     Dosage: EXTENDED RELEASE
     Route: 048
  5. PROPRANOLOL [Concomitant]
     Active Substance: PROPRANOLOL\PROPRANOLOL HYDROCHLORIDE
     Route: 048
  6. TRAZODONE [Concomitant]
     Active Substance: TRAZODONE HYDROCHLORIDE
     Dosage: AT HS
     Route: 048
  7. BUPROPION [Concomitant]
     Active Substance: BUPROPION
     Route: 048
  8. MONONINE [Suspect]
     Active Substance: COAGULATION FACTOR IX HUMAN
     Route: 042
     Dates: start: 20150222, end: 20150222
  9. HYDROCHLOROTHIAZIDE-LISINOPRIL [Concomitant]
     Dosage: 12.5 MG-20 MG
     Route: 048
  10. MONONINE [Suspect]
     Active Substance: COAGULATION FACTOR IX HUMAN
     Indication: FACTOR IX DEFICIENCY
     Dosage: EVERY MONDAY AND THURSDAY
     Route: 042
  11. MONONINE [Suspect]
     Active Substance: COAGULATION FACTOR IX HUMAN
     Route: 042
     Dates: start: 20150223, end: 20150223

REACTIONS (2)
  - Urinary bladder haemorrhage [Recovered/Resolved]
  - Cystitis [Recovered/Resolved]

NARRATIVE: CASE EVENT DATE: 20150221
